FAERS Safety Report 5017058-1 (Version None)
Quarter: 2006Q2

REPORT INFORMATION
  Report Type: 
  Country: None (occurrence: None)
  Receive Date: 20060526
  Receipt Date: 20060515
  Transmission Date: 20061013
  Serious: Yes (Hospitalization)
  Sender: FDA-Public Use
  Company Number: 2006-01064

PATIENT
  Age: 63 Year
  Sex: Female
  Weight: 78 kg

DRUGS (8)
  1. VELCADE [Suspect]
     Indication: LYMPHOMA
     Dosage: 2.35 MG, INTRAVENOUS
     Route: 042
     Dates: start: 20060328, end: 20060501
  2. HYDROCHLOROTHIAZIDE [Concomitant]
  3. NEXIUM [Concomitant]
  4. LISINOPRIL [Concomitant]
  5. VICODIN [Concomitant]
  6. POTASSIUM (POTASSIUM) [Concomitant]
  7. XANAX [Concomitant]
  8. VALTREX [Concomitant]

REACTIONS (5)
  - DIZZINESS [None]
  - GASTROENTERITIS VIRAL [None]
  - HEPATIC CYST [None]
  - LEUKOPENIA [None]
  - THROMBOCYTOPENIA [None]
